FAERS Safety Report 5877234-2 (Version None)
Quarter: 2008Q3

REPORT INFORMATION
  Report Type: 
  Country: None (occurrence: None)
  Receive Date: 20080910
  Receipt Date: 20080829
  Transmission Date: 20090109
  Serious: Yes (Death, Other)
  Sender: FDA-Public Use
  Company Number: US-PFIZER INC-2008073027

PATIENT
  Sex: Male

DRUGS (1)
  1. FLAGYL I.V. [Suspect]
     Indication: GASTROINTESTINAL DISORDER
     Route: 042

REACTIONS (4)
  - ABDOMINAL INFECTION [None]
  - ADVERSE EVENT [None]
  - DEATH [None]
  - DEMENTIA ALZHEIMER'S TYPE [None]
